FAERS Safety Report 6839344-2 (Version None)
Quarter: 2010Q3

REPORT INFORMATION
  Report Type: 
  Country: None (occurrence: None)
  Receive Date: 20100714
  Receipt Date: 20100702
  Transmission Date: 20110219
  Serious: Yes (Hospitalization, Other)
  Sender: FDA-Public Use
  Company Number: PHHY2010US43486

PATIENT
  Sex: Female

DRUGS (3)
  1. RECLAST [Suspect]
     Dosage: UNK
  2. BONIVA [Suspect]
     Dosage: UNK
  3. CIPRO [Concomitant]
     Dosage: UNK

REACTIONS (2)
  - PARALYSIS [None]
  - URINARY TRACT INFECTION [None]
